FAERS Safety Report 17057150 (Version 2)
Quarter: 2019Q4

REPORT INFORMATION
  Report Type: Report from Study
  Country: US (occurrence: US)
  Receive Date: 20191121
  Receipt Date: 20191130
  Transmission Date: 20200122
  Serious: No
  Sender: FDA-Public Use
  Company Number: US-IPSEN BIOPHARMACEUTICALS, INC.-2019-21662

PATIENT
  Age: 66 Year

DRUGS (1)
  1. DYSPORT [Suspect]
     Active Substance: ABOBOTULINUMTOXINA
     Indication: MUSCLE SPASTICITY
     Dosage: 130 (FINGER FLEXORS - 50, WRIST FLEXORS - 30, ELBOW FLEXORS - 20 AND SHOULDER MUSCLES - 30)
     Route: 065

REACTIONS (2)
  - Muscle spasticity [Unknown]
  - Therapeutic response shortened [Unknown]
